FAERS Safety Report 5729828-2 (Version None)
Quarter: 2008Q2

REPORT INFORMATION
  Report Type: 
  Country: None (occurrence: None)
  Receive Date: 20080501
  Receipt Date: 20080421
  Transmission Date: 20081010
  Serious: Yes (Death, Hospitalization)
  Sender: FDA-Public Use
  Company Number: 000696

PATIENT
  Age: 65 Year
  Sex: Female

DRUGS (8)
  1. BUSULFEX [Suspect]
     Indication: STEM CELL TRANSPLANT
     Dosage: ML, INTRAVENOUS, 20 ML,
     Route: 042
     Dates: start: 20071006, end: 20071006
  2. BUSULFEX [Suspect]
     Indication: STEM CELL TRANSPLANT
     Dosage: ML, INTRAVENOUS, 20 ML,
     Route: 042
     Dates: start: 20071007, end: 20071007
  3. BUSULFEX [Suspect]
     Indication: STEM CELL TRANSPLANT
     Dosage: ML, INTRAVENOUS, 20 ML,
     Route: 042
     Dates: start: 20071008, end: 20071008
  4. FLUDARABINE PHOSPHATE [Concomitant]
  5. VALPROATE SODIUM [Concomitant]
  6. METHOTREXATE [Concomitant]
  7. TACROLIMUS [Concomitant]
  8. NEUPOGEN [Concomitant]

REACTIONS (14)
  - ANOREXIA [None]
  - BLOOD PRESSURE DECREASED [None]
  - BRONCHIECTASIS [None]
  - DEPRESSED LEVEL OF CONSCIOUSNESS [None]
  - DIARRHOEA [None]
  - ENGRAFTMENT SYNDROME [None]
  - HEART RATE DECREASED [None]
  - INTERSTITIAL LUNG DISEASE [None]
  - JAUNDICE [None]
  - MALAISE [None]
  - NAUSEA [None]
  - PNEUMONIA [None]
  - STOMATITIS [None]
  - VOMITING [None]
